FAERS Safety Report 6771425-4 (Version None)
Quarter: 2010Q2

REPORT INFORMATION
  Report Type: 
  Country: None (occurrence: None)
  Receive Date: 20100616
  Receipt Date: 20100608
  Transmission Date: 20101027
  Serious: Yes (Other)
  Sender: FDA-Public Use
  Company Number: BE-AMGEN-KDC386164

PATIENT
  Sex: Female

DRUGS (2)
  1. DENOSUMAB [Suspect]
     Indication: METASTASES TO BONE
     Route: 058
     Dates: start: 20090731, end: 20100111
  2. MEDROL [Concomitant]
     Dates: start: 20081006, end: 20100105

REACTIONS (1)
  - OSTEONECROSIS OF JAW [None]
